FAERS Safety Report 16084821 (Version 1)
Quarter: 2019Q1

REPORT INFORMATION
  Report Type: Spontaneous
  Country: US (occurrence: US)
  Receive Date: 20190318
  Receipt Date: 20190318
  Transmission Date: 20190418
  Serious: No
  Sender: FDA-Public Use
  Company Number: US-AVADEL SPECIALTY PHARMACEUTICALS, LLC-2018AVA00555

PATIENT
  Age: 79 Year
  Sex: Male
  Weight: 82.54 kg

DRUGS (4)
  1. ATENOLOL. [Concomitant]
     Active Substance: ATENOLOL
  2. VALSARTAN. [Concomitant]
     Active Substance: VALSARTAN
  3. NOCTIVA [Suspect]
     Active Substance: DESMOPRESSIN ACETATE
     Indication: NOCTURIA
     Dosage: 0.83 ?G, 1X/DAY IN THE EVENING
     Route: 045
     Dates: start: 20181213, end: 20181213
  4. CLOPIDOGREL [Concomitant]
     Active Substance: CLOPIDOGREL BISULFATE

REACTIONS (6)
  - Rhinalgia [Recovered/Resolved]
  - Drug ineffective [Recovered/Resolved]
  - Product preparation issue [Recovered/Resolved]
  - Rhinorrhoea [Recovered/Resolved]
  - Epistaxis [Recovered/Resolved]
  - Sneezing [Recovered/Resolved]

NARRATIVE: CASE EVENT DATE: 20181213
